FAERS Safety Report 8904036 (Version 1)
Quarter: 2012Q4

REPORT INFORMATION
  Report Type: 
  Country: ID (occurrence: ID)
  Receive Date: 20121113
  Receipt Date: 20121113
  Transmission Date: 20130627
  Serious: Yes (Death)
  Sender: FDA-Public Use
  Company Number: PHHY2012ID104044

PATIENT
  Age: 43 Year
  Sex: Female

DRUGS (2)
  1. GLIVEC [Suspect]
     Indication: CHRONIC MYELOID LEUKAEMIA
     Dosage: 400 mg, daily
     Route: 048
  2. CHEMOTHERAPEUTICS NOS [Concomitant]
     Dosage: UNK UKN, UNK

REACTIONS (1)
  - Death [Fatal]
